FAERS Safety Report 7374389-8 (Version None)
Quarter: 2011Q1

REPORT INFORMATION
  Report Type: 
  Country: None (occurrence: None)
  Receive Date: 20110315
  Receipt Date: 20110307
  Transmission Date: 20110831
  Serious: Yes (Disabling, Other)
  Sender: FDA-Public Use
  Company Number: 850537

PATIENT
  Age: 12 Year
  Sex: Female

DRUGS (2)
  1. CISPLATIN [Suspect]
     Indication: PRIMITIVE NEUROECTODERMAL TUMOUR
     Dosage: 216 MG/^2
  2. CARBOPLATIN [Suspect]
     Indication: PRIMITIVE NEUROECTODERMAL TUMOUR
     Dosage: 1260 MG/M^2

REACTIONS (3)
  - DEAFNESS UNILATERAL [None]
  - TINNITUS [None]
  - INSOMNIA [None]
